FAERS Safety Report 7184536-9 (Version None)
Quarter: 2010Q4

REPORT INFORMATION
  Report Type: 
  Country: None (occurrence: None)
  Receive Date: 20101222
  Receipt Date: 20101213
  Transmission Date: 20110411
  Serious: Yes (Other)
  Sender: FDA-Public Use
  Company Number: IT-ELI_LILLY_AND_COMPANY-IT201012003565

PATIENT
  Sex: Female

DRUGS (2)
  1. BYETTA [Suspect]
     Indication: TYPE 2 DIABETES MELLITUS
     Dosage: 2 D/F, DAILY (1/D)
     Route: 058
     Dates: start: 20100403, end: 20100815
  2. METFORMIN [Concomitant]

REACTIONS (3)
  - PANCREATITIS [None]
  - RENAL PAIN [None]
  - VOMITING [None]
